FAERS Safety Report 5326877-3 (Version None)
Quarter: 2007Q2

REPORT INFORMATION
  Report Type: 
  Country: None (occurrence: None)
  Receive Date: 20070511
  Receipt Date: 20070507
  Transmission Date: 20071010
  Serious: Yes (Hospitalization)
  Sender: FDA-Public Use
  Company Number: 008-C5013-07050365

PATIENT
  Age: 65 Year
  Sex: Male
  Weight: 93.5 kg

DRUGS (2)
  1. CC-5013 (LENALIDOMIDE) (CAPSULES) [Suspect]
     Indication: MULTIPLE MYELOMA
     Dosage: DAILY, DAY 1 TO 21, ORAL
     Route: 048
     Dates: start: 20070423, end: 20070507
  2. DEXAMETHASONE TAB [Suspect]
     Indication: MULTIPLE MYELOMA
     Dosage: DAILY, DAYS 1-4, 9-12, 17-21
     Dates: start: 20070423

REACTIONS (2)
  - NEUTROPENIA [None]
  - ORAL CANDIDIASIS [None]
